FAERS Safety Report 22108668 (Version 2)
Quarter: 2023Q2

REPORT INFORMATION
  Report Type: Spontaneous
  Country: PL (occurrence: PL)
  Receive Date: 20230317
  Receipt Date: 20230426
  Transmission Date: 20230721
  Serious: Yes (Other)
  Sender: FDA-Public Use
  Company Number: PL-JNJFOC-20230340153

PATIENT
  Age: 20 Year
  Weight: 55 kg

DRUGS (13)
  1. UPTRAVI [Suspect]
     Active Substance: SELEXIPAG
     Indication: Pulmonary arterial hypertension
     Dosage: TOOK 3 TABLETS OF THE DRUG
     Route: 048
     Dates: start: 20230311, end: 20230312
  2. UPTRAVI [Suspect]
     Active Substance: SELEXIPAG
     Indication: Right-to-left cardiac shunt
  3. REMIDIA [SILDENAFIL CITRATE] [Concomitant]
  4. MACITENTAN [Concomitant]
     Active Substance: MACITENTAN
  5. METOPROLOL TARTRATE [Concomitant]
     Active Substance: METOPROLOL TARTRATE
  6. ENALAPRIL [Concomitant]
     Active Substance: ENALAPRIL
  7. INSPRA [Concomitant]
     Active Substance: EPLERENONE
     Dosage: 1/2 TABLET OF 25 MG
  8. VALPROIC ACID [Concomitant]
     Active Substance: VALPROIC ACID
  9. MAGNESIUM OXIDE\PYRIDOXINE HYDROCHLORIDE [Concomitant]
     Active Substance: MAGNESIUM OXIDE\PYRIDOXINE HYDROCHLORIDE
  10. BUDESONIDE\FORMOTEROL FUMARATE [Concomitant]
     Active Substance: BUDESONIDE\FORMOTEROL FUMARATE
     Dosage: 160/4.5 2 X DAILY
  11. PULMICORT TURBUHALER [Concomitant]
     Active Substance: BUDESONIDE
     Dosage: 0.5 MG/ML 1X DAILY BY NEBULIZATION
  12. DESLORATADINE [Concomitant]
     Active Substance: DESLORATADINE
     Dosage: 1X DAILY IN THE EVENING
  13. MONTELUKAST SODIUM [Concomitant]
     Active Substance: MONTELUKAST SODIUM

REACTIONS (3)
  - Seizure [Recovered/Resolved]
  - Nausea [Recovered/Resolved]
  - Vomiting [Recovered/Resolved]

NARRATIVE: CASE EVENT DATE: 20230312
